FAERS Safety Report 7654214-8 (Version None)
Quarter: 2011Q3

REPORT INFORMATION
  Report Type: 
  Country: None (occurrence: None)
  Receive Date: 20110803
  Receipt Date: 20110725
  Transmission Date: 20111222
  Serious: Yes (Death, Hospitalization, Other)
  Sender: FDA-Public Use
  Company Number: US-BAYER-200937871NA

PATIENT
  Age: 69 Year
  Sex: Female
  Weight: 88 kg

DRUGS (22)
  1. LASIX [Concomitant]
     Dosage: 40 MG
     Route: 042
     Dates: start: 20040610
  2. LASIX [Concomitant]
     Dosage: 10 MG
     Route: 042
     Dates: start: 20040615, end: 20040615
  3. HEPARIN [Concomitant]
     Dosage: 25,000 UNITS
     Route: 042
     Dates: start: 20040615, end: 20040615
  4. NORVASC [Concomitant]
     Dosage: 10 MG
     Route: 048
     Dates: start: 20040610, end: 20040615
  5. PROTAMINE [Concomitant]
     Dosage: 350 MG
     Route: 042
     Dates: start: 20040615, end: 20040615
  6. DOPAMINE HCL [Concomitant]
  7. TRASYLOL [Suspect]
     Indication: CORONARY ARTERY BYPASS
     Dosage: 200 ML LOADING DOSE
     Route: 042
     Dates: start: 20040615, end: 20040615
  8. TRASYLOL [Suspect]
     Dosage: 50 ML/HOUR
     Route: 042
     Dates: start: 20040615, end: 20040615
  9. HEPARIN [Concomitant]
     Dosage: 5000 UNITS
     Route: 058
     Dates: start: 20040610
  10. VANCOMYCIN [Concomitant]
     Dosage: 1 GM
     Route: 042
     Dates: start: 20040615, end: 20040615
  11. ANCEF [Concomitant]
     Dosage: 1.25 GMS
     Route: 042
     Dates: start: 20040615, end: 20040615
  12. TRASYLOL [Suspect]
     Indication: MITRAL VALVE REPLACEMENT
     Dosage: 1ML TEST DOSE
     Route: 042
     Dates: start: 20040615, end: 20040615
  13. LISINOPRIL [Concomitant]
     Dosage: 20 MG
     Route: 048
     Dates: start: 20040610, end: 20040615
  14. ACCUPRIL [Concomitant]
     Dosage: 10 MG
     Route: 048
     Dates: start: 20040610, end: 20040615
  15. EPINEPHRINE [Concomitant]
     Dosage: 4-6 MG /HR
     Route: 042
     Dates: start: 20040615, end: 20040615
  16. NITROGLYCERIN [Concomitant]
     Dosage: 25-50 ML/HR
     Route: 041
     Dates: start: 20040115, end: 20040115
  17. CONTRAST MEDIA [Concomitant]
     Dosage: 170 ML
     Route: 042
     Dates: start: 20040610, end: 20040610
  18. HYDROCHLOROTHIAZIDE [Concomitant]
     Dosage: UNK
     Route: 048
     Dates: end: 20040615
  19. COREG [Concomitant]
     Dosage: 3.125 MG
     Route: 048
     Dates: start: 20040610, end: 20040615
  20. RED BLOOD CELLS [Concomitant]
     Dosage: 1 UNIT
     Route: 042
     Dates: start: 20040615, end: 20040615
  21. LIPITOR [Concomitant]
     Dosage: 20 MG
     Route: 048
     Dates: start: 20040610, end: 20040615
  22. MILRINONE [Concomitant]
     Dosage: 0.5 MG/KG/MIN
     Route: 041
     Dates: start: 20040615, end: 20040615

REACTIONS (13)
  - RENAL INJURY [None]
  - STRESS [None]
  - UNEVALUABLE EVENT [None]
  - ANHEDONIA [None]
  - ANXIETY [None]
  - MULTI-ORGAN FAILURE [None]
  - RENAL IMPAIRMENT [None]
  - FEAR [None]
  - INJURY [None]
  - DEATH [None]
  - PAIN [None]
  - EMOTIONAL DISTRESS [None]
  - RENAL FAILURE [None]
